FAERS Safety Report 13360631 (Version 13)
Quarter: 2018Q4

REPORT INFORMATION
  Report Type: Report from Study
  Country: US (occurrence: US)
  Receive Date: 20170322
  Receipt Date: 20181114
  Transmission Date: 20190204
  Serious: Yes (Hospitalization, Other)
  Sender: FDA-Public Use
  Company Number: US-ACTELION-A-US2015-114599

PATIENT
  Age: 65 Year
  Sex: Male

DRUGS (58)
  1. OPSUMIT [Suspect]
     Active Substance: MACITENTAN
     Indication: CHRONIC OBSTRUCTIVE PULMONARY DISEASE
     Dosage: 5 UNK, UNK
     Route: 048
  2. CYCLOBENZAPRINE. [Concomitant]
     Active Substance: CYCLOBENZAPRINE
     Dosage: UNK
     Dates: start: 20150922
  3. INSULINE LISPRO [Concomitant]
     Dosage: UNK
     Dates: start: 20170927
  4. PREDNISONE. [Concomitant]
     Active Substance: PREDNISONE
  5. AMOXICILLIN/CLAVULANIC ACID [Concomitant]
     Active Substance: AMOXICILLIN\CLAVULANIC ACID
     Dosage: UNK
     Dates: start: 20170927
  6. AZITHROMYCIN ANHYDROUS. [Concomitant]
     Active Substance: AZITHROMYCIN ANHYDROUS
     Dosage: UNK
     Dates: start: 20170927
  7. FENTANYL. [Concomitant]
     Active Substance: FENTANYL
     Dosage: UNK
     Dates: start: 20170927
  8. ACYCLOVIR. [Concomitant]
     Active Substance: ACYCLOVIR
  9. NABUMETONE. [Concomitant]
     Active Substance: NABUMETONE
  10. ATROVENT [Concomitant]
     Active Substance: IPRATROPIUM BROMIDE
     Dosage: UNK
  11. VANCOMYCIN [Concomitant]
     Active Substance: VANCOMYCIN
  12. METOPROLOL TARTRATE. [Concomitant]
     Active Substance: METOPROLOL TARTRATE
  13. ZOLPIDEM [Concomitant]
     Active Substance: ZOLPIDEM\ZOLPIDEM TARTRATE
  14. METHYLPREDNISOLONE. [Concomitant]
     Active Substance: METHYLPREDNISOLONE
     Dosage: UNK
     Dates: start: 20170927
  15. SULFAMETHOXAZOLE AND TRIMETHOPRIM [Concomitant]
     Active Substance: SULFAMETHOXAZOLE\TRIMETHOPRIM
  16. OPSUMIT [Suspect]
     Active Substance: MACITENTAN
     Indication: PULMONARY HYPERTENSION
     Dosage: 10 MG, UNK
     Route: 048
     Dates: start: 20141011
  17. DUONEB [Concomitant]
     Active Substance: ALBUTEROL SULFATE\IPRATROPIUM BROMIDE
     Dosage: UNK
  18. LEVOTHYROXINE SODIUM. [Concomitant]
     Active Substance: LEVOTHYROXINE SODIUM
     Dosage: UNK
     Dates: start: 20170927
  19. ZOFRAN [Concomitant]
     Active Substance: ONDANSETRON HYDROCHLORIDE
  20. ZOSYN [Concomitant]
     Active Substance: PIPERACILLIN SODIUM\TAZOBACTAM SODIUM
  21. METOPROLOL SUCCINATE. [Concomitant]
     Active Substance: METOPROLOL SUCCINATE
     Dosage: UNK
     Dates: start: 20170927
  22. INSULIN ASPART [Concomitant]
     Active Substance: INSULIN ASPART
  23. MEROPENEM. [Concomitant]
     Active Substance: MEROPENEM
     Dosage: UNK
     Dates: start: 20170927
  24. MIDAZOLAM [Concomitant]
     Active Substance: MIDAZOLAM HYDROCHLORIDE
     Dosage: UNK
     Dates: start: 20170927
  25. TOUJEO [Concomitant]
     Active Substance: INSULIN GLARGINE
  26. FUROSEMIDE. [Concomitant]
     Active Substance: FUROSEMIDE
  27. LEVOTHYROXINE. [Concomitant]
     Active Substance: LEVOTHYROXINE
     Dosage: UNK
     Dates: start: 20120412
  28. DILTIAZEM. [Concomitant]
     Active Substance: DILTIAZEM
     Dosage: UNK
     Dates: start: 20160331
  29. GUAIFENESINE [Concomitant]
     Dosage: UNK
     Dates: start: 20170927
  30. MAGNESIUM OXIDE. [Concomitant]
     Active Substance: MAGNESIUM OXIDE
     Dosage: UNK
     Dates: start: 20170927
  31. PANTOPRAZOLE SODIUM. [Concomitant]
     Active Substance: PANTOPRAZOLE SODIUM
  32. PHENERGAN [Concomitant]
     Active Substance: PROMETHAZINE HYDROCHLORIDE
  33. LINEZOLID. [Concomitant]
     Active Substance: LINEZOLID
     Dosage: UNK
     Dates: start: 20170927
  34. ALBUTEROL W/IPRATROPIUM [Concomitant]
     Active Substance: ALBUTEROL\IPRATROPIUM
     Dosage: UNK
     Dates: start: 20120112
  35. METOPROLOL. [Concomitant]
     Active Substance: METOPROLOL
     Dosage: UNK
     Dates: start: 20141218
  36. AUGMENTIN [Concomitant]
     Active Substance: AMOXICILLIN\CLAVULANATE POTASSIUM
     Dosage: UNK
     Dates: start: 20161027
  37. POTASSIUM CHLORIDE. [Concomitant]
     Active Substance: POTASSIUM CHLORIDE
  38. LEVOFLOXACIN. [Concomitant]
     Active Substance: LEVOFLOXACIN
     Dosage: UNK
     Dates: start: 20170927
  39. DEXTROMETHORPHAN [Concomitant]
     Active Substance: DEXTROMETHORPHAN
     Dosage: UNK
     Dates: start: 20170927
  40. PROTONIX [Concomitant]
     Active Substance: PANTOPRAZOLE SODIUM
     Dosage: UNK
     Dates: start: 20170927
  41. INVANZ [Concomitant]
     Active Substance: ERTAPENEM SODIUM
     Dosage: UNK
     Dates: start: 20180604
  42. DOXYCYCLINE. [Concomitant]
     Active Substance: DOXYCYCLINE
  43. INSULINE GLARGINE [Concomitant]
     Active Substance: INSULIN GLARGINE
     Dosage: UNK
     Dates: start: 20170927
  44. METFORMIN [Concomitant]
     Active Substance: METFORMIN HYDROCHLORIDE
  45. MORPHINE SULFATE. [Concomitant]
     Active Substance: MORPHINE SULFATE
  46. PERCOCET [Concomitant]
     Active Substance: ACETAMINOPHEN\OXYCODONE HYDROCHLORIDE
  47. OMEPRAZOLE. [Concomitant]
     Active Substance: OMEPRAZOLE
  48. RESTORIL [Concomitant]
     Active Substance: TEMAZEPAM
     Dosage: UNK
     Dates: start: 20170927
  49. BUDESONIDE. [Concomitant]
     Active Substance: BUDESONIDE
     Dosage: UNK
     Dates: start: 20150922
  50. ATORVASTATIN [Concomitant]
     Active Substance: ATORVASTATIN
     Dosage: UNK
     Dates: start: 20120328
  51. DALIRESP [Concomitant]
     Active Substance: ROFLUMILAST
     Dosage: UNK
     Dates: start: 20140922
  52. SOLU-MEDROL [Concomitant]
     Active Substance: METHYLPREDNISOLONE SODIUM SUCCINATE
  53. FLUCONAZOLE. [Concomitant]
     Active Substance: FLUCONAZOLE
  54. AUGMENTIN [Concomitant]
     Active Substance: AMOXICILLIN\CLAVULANATE POTASSIUM
     Dosage: UNK
     Dates: start: 20170328
  55. DIPHENHYDRAMINE HCL [Concomitant]
     Active Substance: DIPHENHYDRAMINE HYDROCHLORIDE
     Dosage: UNK
  56. LOVENOX [Concomitant]
     Active Substance: ENOXAPARIN SODIUM
  57. TEMAZEPAM. [Concomitant]
     Active Substance: TEMAZEPAM
  58. HYDROCODONE BITARTRATE AND ACETAMINOPHEN [Concomitant]
     Active Substance: ACETAMINOPHEN\HYDROCODONE BITARTRATE
     Dosage: UNK
     Dates: start: 20170927

REACTIONS (35)
  - Pulmonary mass [Recovered/Resolved with Sequelae]
  - Dyspnoea [Recovered/Resolved]
  - Anaemia [Recovering/Resolving]
  - Bronchitis bacterial [Recovered/Resolved]
  - Bronchoalveolar lavage [Recovered/Resolved with Sequelae]
  - Pulmonary congestion [Recovered/Resolved with Sequelae]
  - Condition aggravated [Recovered/Resolved]
  - Pneumonia pseudomonal [Recovered/Resolved]
  - Metastases to kidney [Unknown]
  - Stenotrophomonas infection [Recovered/Resolved]
  - Lung adenocarcinoma recurrent [Recovered/Resolved with Sequelae]
  - Packed red blood cell transfusion [Recovering/Resolving]
  - Chronic obstructive pulmonary disease [Recovered/Resolved]
  - Bronchial secretion retention [Recovered/Resolved]
  - Drug intolerance [Unknown]
  - Pseudomonas infection [Not Recovered/Not Resolved]
  - Disease progression [Recovered/Resolved]
  - Acute respiratory failure [Recovered/Resolved]
  - Tachypnoea [Recovered/Resolved]
  - Productive cough [Recovered/Resolved with Sequelae]
  - Candida infection [Not Recovered/Not Resolved]
  - Chest pain [Recovered/Resolved]
  - Adverse drug reaction [Unknown]
  - Pyrexia [Recovered/Resolved]
  - Asthenia [Recovered/Resolved]
  - Pseudomonas test positive [Recovered/Resolved]
  - Sputum culture positive [Unknown]
  - Small cell lung cancer metastatic [Recovered/Resolved]
  - Renal cell carcinoma [Not Recovered/Not Resolved]
  - Cough [Recovered/Resolved]
  - Pneumonia [Recovered/Resolved]
  - Transfusion [Unknown]
  - Platelet transfusion [Unknown]
  - Respiratory distress [Recovered/Resolved]
  - Secretion discharge [Recovered/Resolved]

NARRATIVE: CASE EVENT DATE: 20150120
